FAERS Safety Report 8194406 (Version 2)
Quarter: 2012Q4

REPORT INFORMATION
  Report Type: 
  Country: US (occurrence: US)
  Receive Date: 20111023
  Receipt Date: 20121127
  Transmission Date: 20130627
  Serious: Yes (Hospitalization, Other)
  Sender: FDA-Public Use
  Company Number: US-ELI_LILLY_AND_COMPANY-US201110004929

PATIENT
  Age: 53 Year
  Sex: Male

DRUGS (10)
  1. BYETTA [Suspect]
     Indication: TYPE 2 DIABETES MELLITUS
     Dosage: 10 ug, bid
     Route: 058
     Dates: start: 20071004
  2. ENALAPRIL [Concomitant]
     Indication: BLOOD PRESSURE
     Dosage: 10 mg, qd
     Route: 048
  3. NEXIUM [Concomitant]
     Dosage: 40 mg, other
     Route: 048
  4. ACTOS [Concomitant]
     Indication: TYPE 2 DIABETES MELLITUS
     Dosage: 15 mg, tid
     Route: 048
  5. AMARYL [Concomitant]
     Indication: TYPE 2 DIABETES MELLITUS
     Dosage: 2 mg, unknown
  6. PRANDIN [Concomitant]
     Dosage: 1 mg, tid
     Route: 048
  7. FISH OIL [Concomitant]
  8. VITAMIN D [Concomitant]
     Dosage: UNK
  9. LOVAZA [Concomitant]
     Indication: HYPERTRIGLYCERIDAEMIA
     Dosage: 1000 mg, bid
  10. METFORMIN [Concomitant]
     Indication: TYPE 2 DIABETES MELLITUS

REACTIONS (1)
  - Pancreatitis acute [Recovering/Resolving]
